FAERS Safety Report 18981259 (Version 2)
Quarter: 2021Q1

REPORT INFORMATION
  Report Type: Spontaneous
  Country: US (occurrence: US)
  Receive Date: 20210308
  Receipt Date: 20210317
  Transmission Date: 20210420
  Serious: No
  Sender: FDA-Public Use
  Company Number: US-ASTRAZENECA-2021A096699

PATIENT
  Age: 861 Month
  Sex: Male
  Weight: 87.5 kg

DRUGS (2)
  1. METFORMIN [Concomitant]
     Active Substance: METFORMIN HYDROCHLORIDE
     Indication: DIABETES MELLITUS
     Route: 048
  2. BYDUREON BCISE [Suspect]
     Active Substance: EXENATIDE
     Indication: BLOOD GLUCOSE INCREASED
     Route: 058
     Dates: start: 20210116

REACTIONS (6)
  - Weight decreased [Unknown]
  - Waist circumference decreased [Unknown]
  - Blood glucose decreased [Unknown]
  - COVID-19 [Recovered/Resolved]
  - Intentional product misuse [Unknown]
  - Device malfunction [Unknown]

NARRATIVE: CASE EVENT DATE: 202012
